FAERS Safety Report 16915627 (Version 1)
Quarter: 2019Q4

REPORT INFORMATION
  Report Type: Spontaneous
  Country: US (occurrence: US)
  Receive Date: 20191013
  Receipt Date: 20191013
  Transmission Date: 20200122
  Serious: No
  Sender: FDA-Public Use
  Company Number: None

PATIENT
  Age: 40 Year
  Sex: Female
  Weight: 51.75 kg

DRUGS (1)
  1. SUBLOCADE [Suspect]
     Active Substance: BUPRENORPHINE
     Indication: DRUG DEPENDENCE
     Dosage: ?          OTHER FREQUENCY:1 A MONTH;?
     Route: 058
     Dates: start: 20190604

REACTIONS (3)
  - Somnolence [None]
  - Speech disorder [None]
  - Confusional state [None]

NARRATIVE: CASE EVENT DATE: 20190918
